FAERS Safety Report 13177262 (Version 2)
Quarter: 2017Q3

REPORT INFORMATION
  Report Type: Report from Study
  Country: US (occurrence: US)
  Receive Date: 20170201
  Receipt Date: 20170731
  Transmission Date: 20171127
  Serious: No
  Sender: FDA-Public Use
  Company Number: US-EXELIXIS-CABO-16007534

PATIENT
  Sex: Male

DRUGS (4)
  1. SYNTHROID [Concomitant]
     Active Substance: LEVOTHYROXINE SODIUM
  2. ALLOPURINOL. [Concomitant]
     Active Substance: ALLOPURINOL
  3. CABOMETYX [Suspect]
     Active Substance: CABOZANTINIB S-MALATE
     Indication: RENAL CANCER
     Dosage: 60 MG, QD
     Route: 048
     Dates: start: 20161022, end: 2016
  4. CABOMETYX [Suspect]
     Active Substance: CABOZANTINIB S-MALATE
     Dosage: 40 MG, QD
     Route: 048
     Dates: start: 20161118

REACTIONS (10)
  - Pain in extremity [Unknown]
  - Scab [Unknown]
  - Skin disorder [Unknown]
  - Adverse reaction [Unknown]
  - Skin ulcer [Not Recovered/Not Resolved]
  - Glossodynia [Unknown]
  - Malaise [Unknown]
  - Oral pain [Unknown]
  - Nausea [Unknown]
  - Lip disorder [Unknown]
